FAERS Safety Report 8483318-5 (Version None)
Quarter: 2012Q3

REPORT INFORMATION
  Report Type: 
  Country: None (occurrence: None)
  Receive Date: 20120702
  Receipt Date: 20120620
  Transmission Date: 20120928
  Serious: Yes (Hospitalization)
  Sender: FDA-Public Use
  Company Number: US-VERTEX PHARMACEUTICALS INC.-AE-2012-009340

PATIENT
  Sex: Female

DRUGS (4)
  1. RIBAVIRIN [Concomitant]
     Indication: HEPATITIS C
     Dates: start: 20120301
  2. PEGASYS [Concomitant]
     Indication: HEPATITIS C
     Dates: start: 20120301
  3. INCIVEK [Suspect]
     Indication: HEPATITIS C
     Route: 048
     Dates: start: 20120301, end: 20120524
  4. RIBAVIRIN [Concomitant]
     Dates: start: 20120401

REACTIONS (9)
  - ABDOMINAL PAIN [None]
  - PYREXIA [None]
  - CHILLS [None]
  - FATIGUE [None]
  - CHOLECYSTECTOMY [None]
  - NAUSEA [None]
  - ASTHENIA [None]
  - RASH [None]
  - ANAEMIA [None]
